FAERS Safety Report 4743004-1 (Version None)
Quarter: 2005Q3

REPORT INFORMATION
  Report Type: 
  Country: None (occurrence: None)
  Receive Date: 20050811
  Receipt Date: 20050801
  Transmission Date: 20060218
  Serious: Yes (Other)
  Sender: FDA-Public Use
  Company Number: GB-ABBOTT-05P-167-0307278-00

PATIENT
  Age: 56 Year
  Sex: Female

DRUGS (7)
  1. HUMIRA [Suspect]
     Indication: DRUG USE FOR UNKNOWN INDICATION
     Route: 058
  2. FLUXETINE [Suspect]
     Indication: DRUG USE FOR UNKNOWN INDICATION
  3. METHOTREXATE [Suspect]
     Indication: DRUG USE FOR UNKNOWN INDICATION
  4. ROFECOXIB [Suspect]
     Indication: DRUG USE FOR UNKNOWN INDICATION
  5. PARAMOL-118 [Suspect]
     Indication: DRUG USE FOR UNKNOWN INDICATION
  6. ESTROGENS CONJUGATED [Suspect]
     Indication: DRUG USE FOR UNKNOWN INDICATION
  7. CLAVULIN [Suspect]
     Indication: DRUG USE FOR UNKNOWN INDICATION

REACTIONS (1)
  - RETINAL HAEMORRHAGE [None]
